FAERS Safety Report 5268844-4 (Version None)
Quarter: 2007Q1

REPORT INFORMATION
  Report Type: 
  Country: None (occurrence: None)
  Receive Date: 20070314
  Receipt Date: 20070302
  Transmission Date: 20070707
  Serious: Yes (Other)
  Sender: FDA-Public Use
  Company Number: 2007SP004073

PATIENT
  Sex: Female

DRUGS (1)
  1. NASONEX [Suspect]
     Indication: DRUG USE FOR UNKNOWN INDICATION
     Dosage: ;UNK;NAS
     Route: 045
     Dates: end: 20070201

REACTIONS (4)
  - DIPLOPIA [None]
  - EXTRAOCULAR MUSCLE PARESIS [None]
  - PARESIS CRANIAL NERVE [None]
  - VISUAL DISTURBANCE [None]
